FAERS Safety Report 23170122 (Version 1)
Quarter: 2023Q4

REPORT INFORMATION
  Report Type: Spontaneous
  Country: US (occurrence: US)
  Receive Date: 20231110
  Receipt Date: 20231110
  Transmission Date: 20240110
  Serious: No
  Sender: FDA-Public Use
  Company Number: US-PADAGIS-2023PAD01591

PATIENT

DRUGS (1)
  1. NYSTOP [Suspect]
     Active Substance: NYSTATIN
     Indication: Fungal skin infection
     Dosage: UNK
     Route: 061
     Dates: start: 20231031

REACTIONS (3)
  - Lethargy [Recovering/Resolving]
  - Dyspnoea [Recovering/Resolving]
  - Product use in unapproved indication [Unknown]

NARRATIVE: CASE EVENT DATE: 20231031
